FAERS Safety Report 7402251-0 (Version None)
Quarter: 2011Q1

REPORT INFORMATION
  Report Type: 
  Country: None (occurrence: None)
  Receive Date: 20110330
  Receipt Date: 20110322
  Transmission Date: 20110831
  Serious: Yes (Other)
  Sender: FDA-Public Use
  Company Number: CL-304-2011

PATIENT
  Age: 29 Year
  Sex: Male
  Weight: 35.4 kg

DRUGS (4)
  1. SEROQUEL [Suspect]
     Indication: SCHIZOAFFECTIVE DISORDER
     Dosage: 1400MG OD ORAL USE
     Dates: start: 20100101
  2. AMOXICILLIN [Suspect]
  3. METRONIDAZOLE UNK [Suspect]
     Dosage: 400MG BD UNK
  4. MYCIN [Suspect]
     Indication: INFECTION

REACTIONS (8)
  - MENTAL IMPAIRMENT [None]
  - DEPRESSED MOOD [None]
  - DELUSION [None]
  - HALLUCINATION, AUDITORY [None]
  - ACUTE PSYCHOSIS [None]
  - SUICIDAL IDEATION [None]
  - INTENTIONAL OVERDOSE [None]
  - DRUG INTERACTION [None]
